FAERS Safety Report 7487749-1 (Version None)
Quarter: 2011Q2

REPORT INFORMATION
  Report Type: 
  Country: None (occurrence: None)
  Receive Date: 20110518
  Receipt Date: 20110510
  Transmission Date: 20111010
  Serious: Yes (Hospitalization)
  Sender: FDA-Public Use
  Company Number: PHFR2011GB02141

PATIENT
  Sex: Male

DRUGS (1)
  1. CLOZARIL [Suspect]
     Indication: SCHIZOPHRENIA
     Dosage: 225 MG, BID
     Route: 048
     Dates: start: 19900312, end: 20110423

REACTIONS (3)
  - MENTAL IMPAIRMENT [None]
  - FULL BLOOD COUNT INCREASED [None]
  - BLOOD CREATINE PHOSPHOKINASE INCREASED [None]
